FAERS Safety Report 8056618-0 (Version None)
Quarter: 2012Q1

REPORT INFORMATION
  Report Type: 
  Country: None (occurrence: None)
  Receive Date: 20120119
  Receipt Date: 20120109
  Transmission Date: 20120608
  Serious: Yes (Other)
  Sender: FDA-Public Use
  Company Number: CHPA2012US000772

PATIENT
  Age: 69 Year
  Sex: Female

DRUGS (1)
  1. GAS-X EXTRA STRENGTH SOFTGELS [Suspect]
     Indication: FLATULENCE
     Dosage: 1 DF, QD
     Route: 048

REACTIONS (5)
  - NAUSEA [None]
  - PRURITUS [None]
  - RASH [None]
  - HIP DEFORMITY [None]
  - ABDOMINAL DISCOMFORT [None]
